FAERS Safety Report 6397840-9 (Version None)
Quarter: 2009Q4

REPORT INFORMATION
  Report Type: 
  Country: None (occurrence: None)
  Receive Date: 20091012
  Receipt Date: 20091002
  Transmission Date: 20100525
  Serious: Yes (Other)
  Sender: FDA-Public Use
  Company Number: BR-GILEAD-2009-0024575

PATIENT
  Sex: Female

DRUGS (3)
  1. VIREAD [Suspect]
     Indication: HIV INFECTION
  2. DARUNAVIR [Concomitant]
     Indication: HIV INFECTION
     Route: 048
  3. ENFUVIRTIDE [Concomitant]
     Indication: HIV INFECTION

REACTIONS (1)
  - ABORTION SPONTANEOUS [None]
